FAERS Safety Report 9492940 (Version 1)
Quarter: 2013Q3

REPORT INFORMATION
  Report Type: Spontaneous
  Country: US (occurrence: US)
  Receive Date: 20130902
  Receipt Date: 20130902
  Transmission Date: 20140515
  Serious: No
  Sender: FDA-Public Use
  Company Number: US-B.I. PHARMACEUTICALS,INC./RIDGEFIELD-2013-BI-26001BP

PATIENT
  Age: 74 Year
  Sex: Female
  Weight: 43 kg

DRUGS (3)
  1. CATAPRES TTS [Suspect]
     Dosage: CATAPRES-TTS DOSE PER APPLICATION: 7.5 MG (0.3 MG
     Route: 061
     Dates: start: 201301
  2. CATAPRES TTS [Suspect]
     Dosage: CATAPRES-TTS DOSE PER APPLICATION: 2.5 MG (0.1 MG
     Route: 061
     Dates: start: 201301
  3. CATAPRES TTS [Suspect]
     Dosage: CATAPRES-TTS DOSE PER APPLICATION: 5.0 MG (0.2 MG
     Route: 061
     Dates: start: 201301

REACTIONS (3)
  - Incorrect drug administration rate [Not Recovered/Not Resolved]
  - Drug prescribing error [Not Recovered/Not Resolved]
  - Drug prescribing error [Not Recovered/Not Resolved]
